FAERS Safety Report 12470494 (Version 1)
Quarter: 2016Q2

REPORT INFORMATION
  Report Type: Spontaneous
  Country: FR (occurrence: FR)
  Receive Date: 20160616
  Receipt Date: 20160616
  Transmission Date: 20160815
  Serious: Yes (Other)
  Sender: FDA-Public Use
  Company Number: FR-ASTRAZENECA-2016SE64249

PATIENT
  Age: 66 Year
  Sex: Female

DRUGS (3)
  1. ASPIRIN. [Concomitant]
     Active Substance: ASPIRIN
  2. CORTICOIDS [Concomitant]
     Active Substance: UNSPECIFIED INGREDIENT
  3. INEXIUM [Suspect]
     Active Substance: ESOMEPRAZOLE
     Route: 048
     Dates: start: 20150109

REACTIONS (11)
  - Intestinal prolapse [Unknown]
  - Dyspepsia [Unknown]
  - Abdominal pain upper [Unknown]
  - Headache [Unknown]
  - Insomnia [Unknown]
  - Gastric polyps [Unknown]
  - Hyponatraemia [Unknown]
  - Constipation [Unknown]
  - Depression [Unknown]
  - Abdominal discomfort [Unknown]
  - Cataract [Unknown]
